FAERS Safety Report 13621422 (Version 3)
Quarter: 2017Q2

REPORT INFORMATION
  Report Type: Spontaneous
  Country: CN (occurrence: CN)
  Receive Date: 20170607
  Receipt Date: 20170623
  Transmission Date: 20170830
  Serious: Yes (Other)
  Sender: FDA-Public Use
  Company Number: CN-ELI_LILLY_AND_COMPANY-CN201705011509

PATIENT
  Age: 15 Year
  Sex: Female

DRUGS (6)
  1. ZYPREXA [Suspect]
     Active Substance: OLANZAPINE
     Indication: SCHIZOPHRENIA
     Dosage: UNK, UNKNOWN
     Route: 065
     Dates: start: 20170510
  2. DEXTROSE SALINE [Concomitant]
     Active Substance: DEXTROSE\SODIUM CHLORIDE
     Dosage: UNK, UNKNOWN
     Route: 065
  3. INVEGA [Concomitant]
     Active Substance: PALIPERIDONE
     Indication: PRODUCT USED FOR UNKNOWN INDICATION
     Dosage: 6 MG, UNKNOWN
     Route: 065
  4. ZYPREXA [Suspect]
     Active Substance: OLANZAPINE
     Dosage: 5 MG, QID
     Route: 065
  5. ZYPREXA [Suspect]
     Active Substance: OLANZAPINE
     Dosage: 10 MG, UNK
     Route: 065
     Dates: start: 20170511
  6. ZYPREXA [Suspect]
     Active Substance: OLANZAPINE
     Dosage: 15 MG, UNK
     Route: 065
     Dates: start: 20170515

REACTIONS (1)
  - Liver disorder [Unknown]
